FAERS Safety Report 13444858 (Version 22)
Quarter: 2022Q3

REPORT INFORMATION
  Report Type: Report from Study
  Country: RO (occurrence: RO)
  Receive Date: 20170414
  Receipt Date: 20220929
  Transmission Date: 20221026
  Serious: Yes (Death, Hospitalization, Congenital Anomaly, Other)
  Sender: FDA-Public Use
  Company Number: PHHY2017RO054839

PATIENT
  Age: 16 Year
  Sex: Female
  Weight: 55 kg

DRUGS (9)
  1. GLIVEC [Suspect]
     Active Substance: IMATINIB MESYLATE
     Indication: Acute lymphocytic leukaemia
     Dosage: 340 MG, BID
     Route: 048
     Dates: start: 20161010, end: 20161110
  2. CIPROFLOXACIN [Concomitant]
     Active Substance: CIPROFLOXACIN
     Indication: Product used for unknown indication
     Dosage: 750 MG, UNK
     Route: 065
     Dates: start: 20161026, end: 20161113
  3. METRONIDAZOLE [Concomitant]
     Active Substance: METRONIDAZOLE
     Indication: Product used for unknown indication
     Dosage: 750 MG, UNK
     Route: 065
     Dates: start: 20161026, end: 20161127
  4. FLUCONAZOLE [Concomitant]
     Active Substance: FLUCONAZOLE
     Indication: Product used for unknown indication
     Dosage: 300 MG, UNK
     Route: 065
     Dates: start: 20161026, end: 20161127
  5. MERCAPTOPURINE [Concomitant]
     Active Substance: MERCAPTOPURINE
     Indication: Chemotherapy
     Dosage: 87.5 MG, UNK
     Route: 065
     Dates: start: 20161026, end: 20161110
  6. MERCAPTOPURINE [Concomitant]
     Active Substance: MERCAPTOPURINE
     Dosage: 87.5 MG, UNK
     Route: 065
     Dates: start: 20161115, end: 20161127
  7. CYTARABINE [Concomitant]
     Active Substance: CYTARABINE
     Indication: Chemotherapy
     Dosage: 110 MG, UNK
     Route: 065
     Dates: start: 20161028, end: 20161127
  8. CYCLOPHOSPHAMIDE [Concomitant]
     Active Substance: CYCLOPHOSPHAMIDE
     Indication: Chemotherapy
     Dosage: 1450 MG, UNK
     Route: 065
     Dates: start: 20161026, end: 20161202
  9. MESNA [Concomitant]
     Active Substance: MESNA
     Indication: Chemotherapy
     Dosage: 1800 MG, UNK
     Route: 065
     Dates: start: 20161026, end: 20161203

REACTIONS (20)
  - Cardiogenic shock [Fatal]
  - Cardiac arrest [Fatal]
  - Chronic graft versus host disease [Fatal]
  - Muscle contractions involuntary [Recovered/Resolved]
  - Face oedema [Recovered/Resolved]
  - Pneumonia [Recovered/Resolved]
  - Productive cough [Recovered/Resolved]
  - Dyspnoea [Recovered/Resolved]
  - Nausea [Recovered/Resolved]
  - Vomiting [Recovered/Resolved]
  - Neutropenia [Recovered/Resolved]
  - Blood bilirubin increased [Recovered/Resolved]
  - Klebsiella infection [Recovered/Resolved]
  - Thrombocytopenia [Recovered/Resolved]
  - Gastrointestinal infection [Recovered/Resolved]
  - Pseudomonas infection [Recovered/Resolved]
  - Interstitial lung disease [Unknown]
  - Stomatitis [Unknown]
  - Anaemia [Recovered/Resolved]
  - Anaemia [Unknown]

NARRATIVE: CASE EVENT DATE: 20161026
